FAERS Safety Report 13295833 (Version 1)
Quarter: 2017Q1

REPORT INFORMATION
  Report Type: Report from Study
  Country: None (occurrence: ES)
  Receive Date: 20170303
  Receipt Date: 20170303
  Transmission Date: 20170428
  Serious: Yes (Other)
  Sender: FDA-Public Use
  Company Number: ES-ABBVIE-17P-144-1863577-00

PATIENT
  Age: 91 Year
  Sex: Male

DRUGS (1)
  1. DUODOPA [Suspect]
     Active Substance: CARBIDOPA\LEVODOPA
     Indication: PARKINSON^S DISEASE
     Dosage: 24H/DAY
     Route: 050
     Dates: start: 201011

REACTIONS (5)
  - On and off phenomenon [Recovering/Resolving]
  - Musculoskeletal stiffness [Recovering/Resolving]
  - Dyspnoea [Unknown]
  - Dyspnoea [Recovering/Resolving]
  - On and off phenomenon [Unknown]

NARRATIVE: CASE EVENT DATE: 20170127
